FAERS Safety Report 6362838-3 (Version None)
Quarter: 2009Q3

REPORT INFORMATION
  Report Type: 
  Country: None (occurrence: None)
  Receive Date: 20090919
  Receipt Date: 20090609
  Transmission Date: 20100115
  Serious: No
  Sender: FDA-Public Use
  Company Number: US-ABBOTT-09P-163-0579131-00

PATIENT
  Sex: Male
  Weight: 131.66 kg

DRUGS (10)
  1. HUMIRA [Suspect]
     Indication: PSORIASIS
     Route: 058
     Dates: start: 20081001, end: 20090101
  2. HUMIRA [Suspect]
     Route: 058
     Dates: start: 20090609
  3. LANTUS [Concomitant]
     Indication: DIABETES MELLITUS
  4. DIGOXIN [Concomitant]
     Indication: ARRHYTHMIA
  5. CRESTOR [Concomitant]
     Indication: BLOOD CHOLESTEROL
  6. METFORMIN HCL [Concomitant]
     Indication: DIABETES MELLITUS
     Route: 048
  7. FLURBIPROFEN [Concomitant]
     Indication: DRUG USE FOR UNKNOWN INDICATION
  8. ACTOS [Concomitant]
     Indication: DRUG USE FOR UNKNOWN INDICATION
  9. AMIODARONE HCL [Concomitant]
     Indication: DRUG USE FOR UNKNOWN INDICATION
  10. QUINAPRIL [Concomitant]
     Indication: DRUG USE FOR UNKNOWN INDICATION

REACTIONS (1)
  - NASOPHARYNGITIS [None]
